FAERS Safety Report 10704088 (Version 1)
Quarter: 2015Q1

REPORT INFORMATION
  Report Type: Spontaneous
  Country: US (occurrence: None)
  Receive Date: 20150109
  Receipt Date: 20150109
  Transmission Date: 20150721
  Serious: Yes (Other)
  Sender: FDA-Public Use
  Company Number: None

PATIENT
  Age: 60 Year
  Sex: Female
  Weight: 98.2 kg

DRUGS (1)
  1. 1% LIDOCAINE HCI 10 MG/ML HOSPIRA [Suspect]
     Active Substance: LIDOCAINE HYDROCHLORIDE
     Indication: LOCAL ANAESTHESIA
     Route: 023
     Dates: start: 201411, end: 20141212

REACTIONS (1)
  - Injection site vesicles [None]

NARRATIVE: CASE EVENT DATE: 20141202
